FAERS Safety Report 10333993 (Version 2)
Quarter: 2014Q3

REPORT INFORMATION
  Report Type: Spontaneous
  Country: US (occurrence: US)
  Receive Date: 20140723
  Receipt Date: 20140723
  Transmission Date: 20150326
  Serious: No
  Sender: FDA-Public Use
  Company Number: US-UNITED THERAPEUTICS-UTC-047082

PATIENT
  Age: 57 Year
  Sex: Female
  Weight: 76.2 kg

DRUGS (2)
  1. REVATIO [Concomitant]
     Active Substance: SILDENAFIL CITRATE
  2. REMODULIN [Suspect]
     Active Substance: TREPROSTINIL
     Dosage: 0.012 UG/KG/MIN
     Route: 058
     Dates: start: 20040506

REACTIONS (15)
  - Limb injury [Unknown]
  - Gait disturbance [Unknown]
  - Dysgeusia [Unknown]
  - Dysarthria [Unknown]
  - Dizziness [Unknown]
  - Palpitations [Unknown]
  - Head injury [Unknown]
  - Therapy cessation [Unknown]
  - Infusion site pruritus [Unknown]
  - Fall [Unknown]
  - Infusion site pain [Unknown]
  - Balance disorder [Unknown]
  - Slow speech [Unknown]
  - Heart rate increased [Not Recovered/Not Resolved]
  - Drug dose omission [Unknown]

NARRATIVE: CASE EVENT DATE: 20140407
